FAERS Safety Report 7799534-1 (Version None)
Quarter: 2011Q4

REPORT INFORMATION
  Report Type: 
  Country: None (occurrence: None)
  Receive Date: 20111006
  Receipt Date: 20111006
  Transmission Date: 20120403
  Serious: No
  Sender: FDA-Public Use
  Company Number: None

PATIENT
  Sex: Female

DRUGS (1)
  1. RANITIDINE [Suspect]
     Dosage: 300MG
     Route: 048
     Dates: start: 20110412, end: 20111003

REACTIONS (2)
  - PRODUCT SUBSTITUTION ISSUE [None]
  - HAIR COLOUR CHANGES [None]
